FAERS Safety Report 8342016-9 (Version None)
Quarter: 2012Q2

REPORT INFORMATION
  Report Type: 
  Country: None (occurrence: None)
  Receive Date: 20120507
  Receipt Date: 20120427
  Transmission Date: 20120825
  Serious: Yes (Other)
  Sender: FDA-Public Use
  Company Number: US-BAYER-2012-042062

PATIENT
  Age: 49 Year
  Sex: Female
  Weight: 91.61 kg

DRUGS (1)
  1. ALKA-SELTZER ORIGINAL [Suspect]
     Indication: DYSPEPSIA
     Dosage: 2 U, PRN
     Route: 048
     Dates: start: 20120401, end: 20120401

REACTIONS (1)
  - RESPIRATORY DISTRESS [None]
